FAERS Safety Report 6449222-9 (Version None)
Quarter: 2009Q4

REPORT INFORMATION
  Report Type: 
  Country: None (occurrence: None)
  Receive Date: 20091120
  Receipt Date: 20091116
  Transmission Date: 20100525
  Serious: Yes (Hospitalization)
  Sender: FDA-Public Use
  Company Number: IT-BRISTOL-MYERS SQUIBB COMPANY-14790950

PATIENT
  Age: 88 Year
  Sex: Male

DRUGS (11)
  1. COUMADIN [Suspect]
     Indication: ATRIAL FIBRILLATION
     Dosage: INTERRUPTED ON 22SEP09.
     Route: 048
     Dates: start: 20090821
  2. COUMADIN [Suspect]
     Indication: PROPHYLAXIS
     Dosage: INTERRUPTED ON 22SEP09.
     Route: 048
     Dates: start: 20090821
  3. TAREG [Concomitant]
     Dosage: CAPS
  4. CARDICOR [Concomitant]
     Dosage: TABS
  5. ESKIM [Concomitant]
     Dosage: CAPS
  6. NORVASC [Concomitant]
     Dosage: TABS
  7. SIVASTIN [Concomitant]
     Dosage: TABS
  8. ZYLORIC [Concomitant]
     Dosage: TABS
  9. MEPRAL [Concomitant]
     Dosage: MODIFIED RELEASE CAPS
  10. MINIAS [Concomitant]
     Dosage: TABS
  11. LASIX [Concomitant]
     Dosage: TABS

REACTIONS (2)
  - INTERNATIONAL NORMALISED RATIO INCREASED [None]
  - THERAPEUTIC AGENT TOXICITY [None]
